FAERS Safety Report 16714761 (Version 2)
Quarter: 2019Q3

REPORT INFORMATION
  Report Type: Spontaneous
  Country: ES (occurrence: ES)
  Receive Date: 20190819
  Receipt Date: 20190913
  Transmission Date: 20191004
  Serious: Yes (Other)
  Sender: FDA-Public Use
  Company Number: PHHY2019ES188498

PATIENT
  Age: 61 Year
  Sex: Male

DRUGS (12)
  1. VANCOMYCIN [Suspect]
     Active Substance: VANCOMYCIN
     Indication: BACTERIAL INFECTION
     Dosage: UNK
     Route: 065
  2. AMPICILLIN [Suspect]
     Active Substance: AMPICILLIN
     Indication: BACTERIAL INFECTION
     Dosage: UNK
     Route: 065
  3. TEICOPLANIN [Suspect]
     Active Substance: TEICOPLANIN
     Indication: BACTERIAL INFECTION
     Dosage: UNK
     Route: 065
  4. DORIPENEM. [Suspect]
     Active Substance: DORIPENEM
     Indication: BACTERIAL INFECTION
     Dosage: UNK
     Route: 065
  5. FLUCONAZOLE. [Suspect]
     Active Substance: FLUCONAZOLE
     Indication: PROPHYLAXIS
     Dosage: 100 MG, QD
     Route: 065
  6. COLISTIN [Suspect]
     Active Substance: COLISTIN
     Indication: BACTERIAL INFECTION
     Dosage: UNK
     Route: 042
  7. PIPERACILLIN AND TAZOBACTAM [Suspect]
     Active Substance: PIPERACILLIN SODIUM\TAZOBACTAM SODIUM
     Indication: BACTERIAL INFECTION
     Dosage: UNK
     Route: 065
  8. METRONIDAZOLE. [Suspect]
     Active Substance: METRONIDAZOLE
     Indication: BACTERIAL INFECTION
     Route: 065
  9. CEFTAZIDIME. [Suspect]
     Active Substance: CEFTAZIDIME
     Indication: BACTERIAL INFECTION
     Route: 065
  10. AMIKACIN. [Suspect]
     Active Substance: AMIKACIN
     Indication: BACTERIAL INFECTION
     Dosage: UNK
     Route: 065
  11. MEROPENEM. [Suspect]
     Active Substance: MEROPENEM
     Indication: BACTERIAL INFECTION
     Dosage: UNK
     Route: 065
  12. FOSFOMYCIN [Suspect]
     Active Substance: FOSFOMYCIN
     Indication: BACTERIAL INFECTION
     Dosage: UNK
     Route: 042

REACTIONS (5)
  - Pathogen resistance [Unknown]
  - Pyrexia [Recovered/Resolved]
  - Sepsis [Recovered/Resolved]
  - Systemic candida [Recovered/Resolved]
  - Candida infection [Recovered/Resolved]
